FAERS Safety Report 20490475 (Version 1)
Quarter: 2022Q1

REPORT INFORMATION
  Report Type: Spontaneous
  Country: JP (occurrence: JP)
  Receive Date: 20220218
  Receipt Date: 20220218
  Transmission Date: 20220423
  Serious: Yes (Hospitalization)
  Sender: FDA-Public Use
  Company Number: JP-GSKCHJ-JPCH2022JPN004408AA

PATIENT
  Age: 6 Decade
  Sex: Male

DRUGS (1)
  1. NICOTINELL [Suspect]
     Active Substance: NICOTINE
     Indication: Smoking cessation therapy
     Dosage: UNK
     Route: 050
     Dates: start: 20220112

REACTIONS (3)
  - Hospitalisation [Recovered/Resolved]
  - Poor quality sleep [Unknown]
  - Middle insomnia [Unknown]
